FAERS Safety Report 9541668 (Version 1)
Quarter: 2013Q2

REPORT INFORMATION
  Report Type: Spontaneous
  Country: US (occurrence: None)
  Receive Date: 20130524
  Receipt Date: 20130524
  Transmission Date: 20140414
  Serious: Yes (Other)
  Sender: FDA-Public Use
  Company Number: PHEH2013US002474

PATIENT
  Sex: Female

DRUGS (1)
  1. GILENYA [Suspect]
     Indication: MULTIPLE SCLEROSIS
     Route: 048
     Dates: start: 20121116

REACTIONS (6)
  - Abdominal discomfort [None]
  - Anaemia [None]
  - Leukopenia [None]
  - Inappropriate schedule of drug administration [None]
  - Dyspepsia [None]
  - Nausea [None]
